FAERS Safety Report 10190071 (Version 2)
Quarter: 2014Q2

REPORT INFORMATION
  Report Type: Spontaneous
  Country: GB (occurrence: GB)
  Receive Date: 20140522
  Receipt Date: 20140612
  Transmission Date: 20141212
  Serious: Yes (Hospitalization)
  Sender: FDA-Public Use
  Company Number: GB-AMGEN-GBRSP2014036959

PATIENT
  Age: 37 Year
  Sex: Female

DRUGS (6)
  1. NEULASTA [Suspect]
     Indication: NEUTROPENIA
     Dosage: 6 MG IN 0.6ML FORTNIGHTLY DAY AFTER CHEMOTHERAPY
     Route: 065
     Dates: start: 201404, end: 20140507
  2. NEUPOGEN [Suspect]
     Indication: PRODUCT USED FOR UNKNOWN INDICATION
     Dosage: UNK
     Route: 065
  3. DOXORUBICIN [Concomitant]
     Dosage: UNK
     Dates: start: 20140402
  4. CYCLOPHOSPHAMIDE [Concomitant]
     Dosage: UNK
     Dates: start: 20140402
  5. TAXOL [Concomitant]
     Dosage: WEEKLY
  6. MEROPENEM [Concomitant]
     Dosage: UNK

REACTIONS (8)
  - Neutropenia [Not Recovered/Not Resolved]
  - Drug ineffective [Unknown]
  - Gamma-glutamyltransferase increased [Unknown]
  - Haemoglobin decreased [Unknown]
  - Red blood cell count decreased [Unknown]
  - Haematocrit decreased [Unknown]
  - White blood cell count decreased [Unknown]
  - Lymphocyte count decreased [Unknown]
